FAERS Safety Report 4687731-3 (Version None)
Quarter: 2005Q2

REPORT INFORMATION
  Report Type: 
  Country: None (occurrence: None)
  Receive Date: 20050610
  Receipt Date: 20050607
  Transmission Date: 20051028
  Serious: Yes (Death)
  Sender: FDA-Public Use
  Company Number: PHFR2005GB02099

PATIENT

DRUGS (1)
  1. LAMISIL [Suspect]

REACTIONS (1)
  - DEATH [None]
